FAERS Safety Report 8982992 (Version 3)
Quarter: 2013Q1

REPORT INFORMATION
  Report Type: Spontaneous
  Country: US (occurrence: US)
  Receive Date: 20121224
  Receipt Date: 20130208
  Transmission Date: 20140127
  Serious: Yes (Other)
  Sender: FDA-Public Use
  Company Number: PHEH2012US025063

PATIENT
  Age: 79 Year
  Sex: Female

DRUGS (8)
  1. EXELON PATCH [Suspect]
     Indication: DEMENTIA ALZHEIMER^S TYPE
     Dosage: 4.6 MG, UNK
     Route: 062
  2. EXELON PATCH [Suspect]
     Dosage: 4.6 MG (2 PATCHES AT A TIME)
     Route: 062
  3. ACYCLOVIR [Concomitant]
     Dosage: 800 MG, 4 TIMES A DAY
  4. LEVOTHYROXINE [Concomitant]
     Dosage: 0.1 MG, QD
  5. GABAPENTIN [Concomitant]
     Dosage: 600 MG, TID
  6. GEMFIBROZIL [Concomitant]
     Dosage: 600 MG, BID
  7. OMEPRAZOLE [Concomitant]
     Dosage: 40 MG, QD
  8. ALBUTEROL [Concomitant]
     Dosage: 4 MG, BID

REACTIONS (2)
  - Herpes zoster [Unknown]
  - Drug administration error [Unknown]
